FAERS Safety Report 4651898-3 (Version None)
Quarter: 2005Q2

REPORT INFORMATION
  Report Type: 
  Country: None (occurrence: None)
  Receive Date: 20050504
  Receipt Date: 20040913
  Transmission Date: 20051028
  Serious: Yes (Disabling)
  Sender: FDA-Public Use
  Company Number: PHNR2004AU01425

PATIENT
  Sex: Male

DRUGS (3)
  1. ZOMETA [Suspect]
     Indication: PROSTATE CANCER
     Dosage: 4 MG, UNK
  2. CHEMOTHERAPEUTICS,OTHER [Concomitant]
  3. STEROIDS NOS [Concomitant]

REACTIONS (5)
  - BONE LESION [None]
  - HYPOAESTHESIA ORAL [None]
  - OSTEONECROSIS [None]
  - PAIN IN JAW [None]
  - SOFT TISSUE INFECTION [None]
